FAERS Safety Report 17651186 (Version 14)
Quarter: 2023Q4

REPORT INFORMATION
  Report Type: Report from Study
  Country: GB (occurrence: None)
  Receive Date: 20200409
  Receipt Date: 20231031
  Transmission Date: 20240110
  Serious: Yes (Hospitalization, Other)
  Sender: FDA-Public Use
  Company Number: GB-ROCHE-2551235

PATIENT
  Age: 71 Year
  Sex: Female
  Weight: 82 kg

DRUGS (10)
  1. ATEZOLIZUMAB [Suspect]
     Active Substance: ATEZOLIZUMAB
     Indication: Bladder transitional cell carcinoma metastatic
     Dosage: DATE OF MOST RECENT DOSE (840 MG) OF STUDY DRUG ATEZOLIZUMAB PRIOR TO AE ONSET 28/JAN/2020.?ATEZOLIZ
     Route: 041
     Dates: start: 20200128
  2. MAGROLIMAB [Suspect]
     Active Substance: MAGROLIMAB
     Indication: Bladder transitional cell carcinoma metastatic
     Dosage: DATE OF MOST RECENT DOSE (2451 MG) (30MG) OF STUDY DRUG HU5F9-G4 PRIOR TO AE ONSET 04/FEB/2020?PARTI
     Route: 042
     Dates: start: 20200128
  3. DOXAZOSIN [Concomitant]
     Active Substance: DOXAZOSIN MESYLATE
     Indication: Hypertension
     Route: 048
     Dates: start: 20200203, end: 20200815
  4. AMOXICILLIN\CLAVULANATE POTASSIUM [Concomitant]
     Active Substance: AMOXICILLIN\CLAVULANATE POTASSIUM
     Indication: Infection
     Route: 048
     Dates: start: 20200211, end: 20200218
  5. VALSARTAN [Concomitant]
     Active Substance: VALSARTAN
     Indication: Hypertension
     Route: 065
     Dates: start: 20190101, end: 20210201
  6. CARVEDILOL [Concomitant]
     Active Substance: CARVEDILOL
     Indication: Hypertension
     Dates: start: 20190615, end: 20211123
  7. NIFEDIPINE [Concomitant]
     Active Substance: NIFEDIPINE
     Indication: Hypertension
     Route: 065
     Dates: start: 20190101
  8. LANSOPRAZOLE [Concomitant]
     Active Substance: LANSOPRAZOLE
     Route: 048
     Dates: start: 20200218
  9. SANDO-K [Concomitant]
     Indication: Hypokalaemia
     Route: 048
     Dates: start: 20200218, end: 20200221
  10. LANSOPRAZOLE [Concomitant]
     Active Substance: LANSOPRAZOLE
     Route: 048
     Dates: start: 20200218, end: 20200512

REACTIONS (3)
  - Pancytopenia [Recovered/Resolved]
  - Cytokine release syndrome [Recovered/Resolved]
  - Immune-mediated hepatitis [Recovered/Resolved]

NARRATIVE: CASE EVENT DATE: 20200204
